FAERS Safety Report 6132428-6 (Version None)
Quarter: 2009Q1

REPORT INFORMATION
  Report Type: 
  Country: None (occurrence: None)
  Receive Date: 20090324
  Receipt Date: 20090309
  Transmission Date: 20090719
  Serious: Yes (Congenital Anomaly)
  Sender: FDA-Public Use
  Company Number: 2009S1004126

PATIENT
  Sex: Female
  Weight: 2 kg

DRUGS (2)
  1. LAMOTRIGINE [Suspect]
     Indication: CONVULSION
     Dosage: 100 MG;DAILY; TRANS PLACENTAL
     Route: 064
  2. OXCARBAZEPINE [Suspect]
     Indication: CONVULSION
     Dosage: 1200 MG; DAILY;  TRANS PLACENTAL
     Route: 064

REACTIONS (13)
  - ABNORMAL PALMAR/PLANTAR CREASES [None]
  - APLASIA [None]
  - CONGENITAL HAND MALFORMATION [None]
  - CONGENITAL OSTEODYSTROPHY [None]
  - DYSMORPHISM [None]
  - FEEDING DISORDER NEONATAL [None]
  - HEAD CIRCUMFERENCE ABNORMAL [None]
  - HYPERTELORISM OF ORBIT [None]
  - HYPOGLYCAEMIA NEONATAL [None]
  - JOINT CONTRACTURE [None]
  - LOW SET EARS [None]
  - MATERNAL DRUGS AFFECTING FOETUS [None]
  - SMALL FOR DATES BABY [None]
